FAERS Safety Report 17621070 (Version 4)
Quarter: 2022Q2

REPORT INFORMATION
  Report Type: Report from Study
  Country: US (occurrence: US)
  Receive Date: 20200403
  Receipt Date: 20220429
  Transmission Date: 20220721
  Serious: Yes (Other)
  Sender: FDA-Public Use
  Company Number: US-KYOWAKIRIN-2020BKK005053

PATIENT

DRUGS (1)
  1. CRYSVITA [Suspect]
     Active Substance: BUROSUMAB-TWZA
     Indication: Product used for unknown indication
     Dosage: 80 MG, EVERY 4 WEEKS
     Route: 065

REACTIONS (5)
  - Deafness transitory [Not Recovered/Not Resolved]
  - Fear of disease [Unknown]
  - Stress [Unknown]
  - Bruxism [Unknown]
  - Temporomandibular joint syndrome [Unknown]
